FAERS Safety Report 4807143-9 (Version None)
Quarter: 2005Q4

REPORT INFORMATION
  Report Type: 
  Country: None (occurrence: None)
  Receive Date: 20051024
  Receipt Date: 20051003
  Transmission Date: 20060501
  Serious: Yes (Hospitalization, Other)
  Sender: FDA-Public Use
  Company Number: PHEH2005US11166

PATIENT
  Age: 60 Year
  Sex: Female

DRUGS (3)
  1. LOTREL [Suspect]
     Indication: HYPERTENSION
     Dosage: 5/10, QD
     Route: 048
  2. INSULIN [Concomitant]
     Indication: DIABETES MELLITUS
  3. ACTOS [Concomitant]
     Indication: DIABETES MELLITUS

REACTIONS (3)
  - CARDIAC FAILURE CONGESTIVE [None]
  - DIALYSIS [None]
  - RENAL FAILURE [None]
